FAERS Safety Report 8858191 (Version 1)
Quarter: 2012Q4

REPORT INFORMATION
  Report Type: 
  Country: US (occurrence: US)
  Receive Date: 20121024
  Receipt Date: 20121024
  Transmission Date: 20130627
  Serious: No
  Sender: FDA-Public Use
  Company Number: US-AMGEN-USASP2011067231

PATIENT
  Age: 75 Year
  Sex: Female
  Weight: 90.7 kg

DRUGS (10)
  1. ENBREL [Suspect]
     Indication: PRODUCT USED FOR UNKNOWN INDICATION
     Dosage: 50 mg, qwk
     Route: 058
  2. FLUCONAZOLE [Concomitant]
     Dosage: 100 mg, UNK
     Route: 048
  3. METHOTREXATE [Concomitant]
     Dosage: 2.5 mg, UNK
     Route: 048
  4. PREDNISONE [Concomitant]
     Dosage: 1 mg, UNK
     Route: 048
  5. LIPITOR [Concomitant]
     Dosage: 20 mg, UNK
     Route: 048
  6. ATENOLOL [Concomitant]
     Dosage: 100 mg, UNK
     Route: 048
  7. HYDROCHLOROTHIAZIDE [Concomitant]
     Dosage: 25 mg, UNK
     Route: 048
  8. LEVOTHYROXIN [Concomitant]
     Dosage: 100 mug, UNK
     Route: 048
  9. LOSARTAN POTASSIUM [Concomitant]
     Dosage: 25 mg, UNK
     Route: 048
  10. PRESERVISION LUTEIN [Concomitant]
     Dosage: UNK
     Route: 048

REACTIONS (1)
  - Fungal infection [Unknown]
